FAERS Safety Report 17584146 (Version 1)
Quarter: 2020Q1

REPORT INFORMATION
  Report Type: Spontaneous
  Country: US (occurrence: US)
  Receive Date: 20200326
  Receipt Date: 20200326
  Transmission Date: 20200409
  Serious: No
  Sender: FDA-Public Use
  Company Number: US-SHIRE-US202011321

PATIENT

DRUGS (1)
  1. AGRYLIN [Suspect]
     Active Substance: ANAGRELIDE HYDROCHLORIDE
     Indication: THROMBOCYTOSIS
     Dosage: 0.5 MILLIGRAM, 2X/DAY:BID
     Route: 048

REACTIONS (1)
  - Platelet count increased [Unknown]
